FAERS Safety Report 9474640 (Version 1)
Quarter: 2013Q3

REPORT INFORMATION
  Report Type: Spontaneous
  Country: US (occurrence: US)
  Receive Date: 20130823
  Receipt Date: 20130823
  Transmission Date: 20140515
  Serious: Yes (Other)
  Sender: FDA-Public Use
  Company Number: CHPA2013US013226

PATIENT
  Age: 75 Year
  Sex: Female

DRUGS (4)
  1. EXCEDRIN TENSION HEADACHE [Suspect]
     Indication: TENSION HEADACHE
     Dosage: 1 DF, PRN
     Route: 048
  2. ACETYLSALICYLIC ACID [Suspect]
     Dosage: UNK, UNK
     Route: 048
  3. ALEVE [Suspect]
     Dosage: UNK, UNK
     Route: 048
  4. ADVIL (IBUPROFEN) [Suspect]
     Dosage: UNK, UNK
     Route: 048

REACTIONS (3)
  - Irritable bowel syndrome [Unknown]
  - Underdose [Unknown]
  - Expired drug administered [Unknown]
